FAERS Safety Report 8248396-7 (Version None)
Quarter: 2012Q1

REPORT INFORMATION
  Report Type: 
  Country: None (occurrence: None)
  Receive Date: 20120330
  Receipt Date: 20120322
  Transmission Date: 20120608
  Serious: Yes (Hospitalization)
  Sender: FDA-Public Use
  Company Number: NL-ABBOTT-12P-114-0918110-08

PATIENT
  Sex: Female

DRUGS (16)
  1. PREDNISONE TAB [Concomitant]
     Dates: start: 20090226
  2. HUMIRA [Suspect]
     Route: 058
     Dates: start: 20090128, end: 20090731
  3. VITAMIN D [Concomitant]
     Indication: OSTEOPOROSIS
     Dosage: DRINK
  4. HUMIRA [Suspect]
     Dosage: WEEK 2 80MG
     Route: 058
  5. ACETAMINOPHEN [Concomitant]
     Indication: ABDOMINAL PAIN
     Dates: start: 20090310
  6. SODIUM BICARBONATE [Concomitant]
     Indication: OSTEOPOROSIS
     Dates: start: 20110629
  7. HUMIRA [Suspect]
     Route: 058
     Dates: start: 20081231
  8. QUESTRAN [Concomitant]
     Indication: DIARRHOEA
     Dates: start: 20081230
  9. AZATHIOPRINE [Concomitant]
     Indication: CROHN'S DISEASE
     Dates: start: 20090112
  10. HUMIRA [Suspect]
     Route: 058
  11. PREDNISONE TAB [Concomitant]
     Indication: CROHN'S DISEASE
     Dosage: 40 MG AND TAPERING
     Dates: end: 20060101
  12. CALCIUM CARBONATE [Concomitant]
     Indication: OSTEOPOROSIS
     Dosage: 500MG/400IE
     Dates: start: 20061102
  13. LOPERAMIDE [Concomitant]
     Indication: DIARRHOEA
     Dates: start: 20080804
  14. HYDROCOBAMINE [Concomitant]
     Indication: VITAMIN SUPPLEMENTATION
     Dosage: 500MCG/ML
     Dates: start: 20061102
  15. HUMIRA [Suspect]
     Indication: CROHN'S DISEASE
     Dosage: INDUCTION: 160MG (BASELINE)
     Route: 058
     Dates: start: 20080930, end: 20080930
  16. HUMIRA [Suspect]
     Route: 058
     Dates: start: 20081224, end: 20081224

REACTIONS (2)
  - ABSCESS [None]
  - CROHN'S DISEASE [None]
